FAERS Safety Report 6016162-9 (Version None)
Quarter: 2008Q4

REPORT INFORMATION
  Report Type: 
  Country: None (occurrence: None)
  Receive Date: 20081222
  Receipt Date: 20081215
  Transmission Date: 20090506
  Serious: Yes (Other)
  Sender: FDA-Public Use
  Company Number: US-ELI_LILLY_AND_COMPANY-US200811001112

PATIENT
  Sex: Female
  Weight: 97.052 kg

DRUGS (6)
  1. GEMZAR [Suspect]
     Indication: METASTATIC UTERINE CANCER
     Dosage: 1000 MG/M2, DAY 1 AND 8
     Dates: start: 20080530
  2. GEMZAR [Suspect]
     Dosage: 1900 MG, DAY 1 AND 8
     Dates: start: 20080606
  3. GEMZAR [Suspect]
     Dosage: 1950 MG, DAYS 1 AND 8
     Dates: start: 20080828, end: 20081002
  4. CARBOPLATIN [Concomitant]
     Indication: METASTATIC UTERINE CANCER
     Dates: start: 20080530
  5. FENTANYL-100 [Concomitant]
  6. NEULASTA [Concomitant]
     Indication: METASTATIC UTERINE CANCER
     Dates: start: 20080801, end: 20080101

REACTIONS (10)
  - ALANINE AMINOTRANSFERASE INCREASED [None]
  - ANOREXIA [None]
  - ASPARTATE AMINOTRANSFERASE INCREASED [None]
  - BLOOD LACTATE DEHYDROGENASE INCREASED [None]
  - FATIGUE [None]
  - HEADACHE [None]
  - HIP FRACTURE [None]
  - NAUSEA [None]
  - PANCYTOPENIA [None]
  - RECALL PHENOMENON [None]
